FAERS Safety Report 9165884 (Version 1)
Quarter: 2013Q1

REPORT INFORMATION
  Report Type: Report from Study
  Country: US (occurrence: US)
  Receive Date: 20130315
  Receipt Date: 20130315
  Transmission Date: 20140127
  Serious: Yes (Other)
  Sender: FDA-Public Use
  Company Number: US-ABBOTT-13P-163-1060863-00

PATIENT
  Sex: Female

DRUGS (13)
  1. HUMIRA [Suspect]
     Indication: RHEUMATOID ARTHRITIS
     Dates: start: 200401
  2. HUMIRA [Suspect]
     Dates: end: 201211
  3. HUMIRA [Suspect]
     Dates: start: 201302
  4. NAPROXEN [Concomitant]
     Indication: NERVE COMPRESSION
  5. ESTRADIOL [Concomitant]
     Indication: HORMONE REPLACEMENT THERAPY
  6. SINGULAIR [Concomitant]
     Indication: HYPERSENSITIVITY
  7. FLONASE [Concomitant]
     Indication: HYPERSENSITIVITY
  8. GABAPENTIN [Concomitant]
     Indication: NEURALGIA
  9. CYCLOBENZAPRINE [Concomitant]
     Indication: NERVE COMPRESSION
  10. CLONAZEPAM [Concomitant]
     Indication: INSOMNIA
  11. CLONAZEPAM [Concomitant]
     Indication: ANXIETY
  12. LORTAB [Concomitant]
     Indication: PAIN
  13. CELEXA [Concomitant]
     Indication: DEPRESSION

REACTIONS (9)
  - Foot deformity [Recovered/Resolved]
  - Porphyria [Not Recovered/Not Resolved]
  - Gait disturbance [Recovered/Resolved]
  - Wound [Recovered/Resolved]
  - Onychomadesis [Recovered/Resolved]
  - Localised oedema [Recovered/Resolved]
  - Erythema [Recovered/Resolved]
  - Staphylococcal infection [Recovered/Resolved]
  - Drug ineffective [Recovered/Resolved]
